FAERS Safety Report 15771844 (Version 3)
Quarter: 2019Q1

REPORT INFORMATION
  Report Type: Spontaneous
  Country: JP (occurrence: JP)
  Receive Date: 20181228
  Receipt Date: 20190228
  Transmission Date: 20190417
  Serious: Yes (Hospitalization)
  Sender: FDA-Public Use
  Company Number: JP-LUNDBECK-DKLU2058702

PATIENT
  Age: 5 Month
  Sex: Male
  Weight: 6 kg

DRUGS (24)
  1. SABRIL [Suspect]
     Active Substance: VIGABATRIN
     Dosage: AFTER BREAKFAST
     Route: 048
     Dates: start: 20181214, end: 20181214
  2. SABRIL [Suspect]
     Active Substance: VIGABATRIN
     Dosage: AFTER BREAKFAST
     Route: 048
     Dates: start: 20180907, end: 20180918
  3. PANVITAN BABY [Concomitant]
     Indication: PRODUCT USED FOR UNKNOWN INDICATION
     Route: 065
  4. ZINC. [Concomitant]
     Active Substance: ZINC
     Indication: PRODUCT USED FOR UNKNOWN INDICATION
     Route: 065
  5. MEPTIN [Concomitant]
     Active Substance: PROCATEROL HYDROCHLORIDE
     Indication: PRODUCT USED FOR UNKNOWN INDICATION
     Route: 065
  6. SATOSALBE [Concomitant]
     Active Substance: ZINC OXIDE
     Indication: PRODUCT USED FOR UNKNOWN INDICATION
     Route: 065
  7. GASCON [Concomitant]
     Active Substance: DIMETHICONE
     Indication: PRODUCT USED FOR UNKNOWN INDICATION
     Route: 065
  8. ISOTONIC SODIUM CHLORIDE SOLUTION [Concomitant]
     Active Substance: SODIUM CHLORIDE
     Indication: PRODUCT USED FOR UNKNOWN INDICATION
     Route: 065
  9. SABRIL [Suspect]
     Active Substance: VIGABATRIN
     Dosage: AFTER SUPPER
     Route: 048
     Dates: start: 20180907, end: 20181213
  10. SABRIL [Suspect]
     Active Substance: VIGABATRIN
     Dosage: AFTER SUPPER
     Route: 048
     Dates: start: 20180919, end: 20181021
  11. FERROMIA [Concomitant]
     Active Substance: SODIUM FERROUS CITRATE
     Indication: PRODUCT USED FOR UNKNOWN INDICATION
     Route: 065
  12. HOKUNALIN [Concomitant]
     Active Substance: TULOBUTEROL
     Indication: PRODUCT USED FOR UNKNOWN INDICATION
     Route: 065
  13. SABRIL [Suspect]
     Active Substance: VIGABATRIN
     Indication: INFANTILE SPASMS
     Dosage: AFTER BREAKFAST
     Route: 048
     Dates: start: 20180907, end: 20181213
  14. SABRIL [Suspect]
     Active Substance: VIGABATRIN
     Dosage: AFTER BREAKFAST
     Route: 048
     Dates: start: 20181022, end: 20181214
  15. SABRIL [Suspect]
     Active Substance: VIGABATRIN
     Dosage: AFTER SUPPER
     Route: 048
     Dates: start: 20180907, end: 20180918
  16. CORTROSYN Z [Suspect]
     Active Substance: COSYNTROPIN
     Indication: INFANTILE SPASMS
     Route: 030
     Dates: start: 20181126, end: 20181203
  17. MAGMITT [Concomitant]
     Active Substance: MAGNESIUM OXIDE
     Indication: PRODUCT USED FOR UNKNOWN INDICATION
     Route: 065
  18. ELENTAL-P [Concomitant]
     Active Substance: AMINO ACIDS\CARBOHYDRATES\MINERALS\SOYBEAN OIL\VITAMINS
     Indication: PRODUCT USED FOR UNKNOWN INDICATION
     Route: 065
  19. SABRIL [Suspect]
     Active Substance: VIGABATRIN
     Dosage: AFTER SUPPER
     Route: 048
     Dates: start: 20181022, end: 20181214
  20. CORTROSYN Z [Suspect]
     Active Substance: COSYNTROPIN
     Route: 030
     Dates: start: 20180919, end: 20181013
  21. SABRIL [Suspect]
     Active Substance: VIGABATRIN
     Dosage: AFTER BREAKFAST
     Route: 048
     Dates: start: 20180919, end: 20181021
  22. E KEPPRA [Concomitant]
     Active Substance: LEVETIRACETAM
     Indication: INFANTILE SPASMS
     Route: 065
     Dates: start: 20181105
  23. L CARTIN FF [Concomitant]
     Active Substance: LEVOCARNITINE
     Indication: PRODUCT USED FOR UNKNOWN INDICATION
     Route: 065
  24. AZUNOL #1 [Concomitant]
     Indication: PRODUCT USED FOR UNKNOWN INDICATION
     Route: 065

REACTIONS (3)
  - Abnormal behaviour [Recovering/Resolving]
  - Pneumonia aspiration [Recovered/Resolved]
  - Nuclear magnetic resonance imaging abnormal [Recovering/Resolving]

NARRATIVE: CASE EVENT DATE: 20181203
